FAERS Safety Report 21886032 (Version 2)
Quarter: 2023Q1

REPORT INFORMATION
  Report Type: Spontaneous
  Country: BR (occurrence: BR)
  Receive Date: 20230119
  Receipt Date: 20230207
  Transmission Date: 20230417
  Serious: Yes (Other)
  Sender: FDA-Public Use
  Company Number: BR-BoehringerIngelheim-2023-BI-211565

PATIENT
  Age: 11 Year
  Sex: Male
  Weight: 48 kg

DRUGS (9)
  1. ATROVENT [Suspect]
     Active Substance: IPRATROPIUM BROMIDE
     Indication: Asthma
     Dosage: BREAST MILK EXPOSURE
  2. ATROVENT [Suspect]
     Active Substance: IPRATROPIUM BROMIDE
     Dosage: DROPS/ LIQUID, 15 DROPS, NEBULIZATION, IN CRISES
  3. ATROVENT [Suspect]
     Active Substance: IPRATROPIUM BROMIDE
     Dosage: DRUG EXPOSURE IN UTERO
     Route: 064
  4. BEROTEC [Suspect]
     Active Substance: FENOTEROL HYDROBROMIDE
     Indication: Asthma
     Dosage: BEROTEC, DROPS, 4 TO 5 DROPS, NEBULIZATION, IN CRISES
     Dates: start: 201311
  5. BEROTEC [Suspect]
     Active Substance: FENOTEROL HYDROBROMIDE
     Dosage: DRUG EXPOSURE IN UTERO
     Route: 064
  6. BEROTEC [Suspect]
     Active Substance: FENOTEROL HYDROBROMIDE
     Dosage: BREAST MILK EXPOSURE
     Route: 063
  7. BEROTEC [Suspect]
     Active Substance: FENOTEROL HYDROBROMIDE
     Dosage: DRUG EXPOSURE IN UTERO
     Route: 064
  8. BECLOMETHASONE DIPROPIONATE [Suspect]
     Active Substance: BECLOMETHASONE DIPROPIONATE
     Indication: Asthma
     Dosage: 2 PUFFS IN THE MORNING AND 2 PUFFS IN THE EVENING, MAY USE MORE DURING CRISES
  9. ALBUTEROL [Suspect]
     Active Substance: ALBUTEROL
     Indication: Asthma
     Dosage: 2 PUFFS IN THE MORNING AND 2 PUFFS AT NIGHT, WHICH CAN BE USED MORE IN CRISES

REACTIONS (6)
  - Asthmatic crisis [Recovering/Resolving]
  - Sinusitis [Unknown]
  - Drug ineffective [Unknown]
  - Exposure via breast milk [Unknown]
  - Headache [Unknown]
  - Foetal exposure during pregnancy [Unknown]

NARRATIVE: CASE EVENT DATE: 20180101
